FAERS Safety Report 7271967-1 (Version None)
Quarter: 2010Q4

REPORT INFORMATION
  Report Type: 
  Country: None (occurrence: None)
  Receive Date: 20101130
  Receipt Date: 20091118
  Transmission Date: 20110411
  Serious: Yes (Hospitalization)
  Sender: FDA-Public Use
  Company Number: 2009SP037341

PATIENT
  Age: 22 Year
  Sex: Female
  Weight: 86.1834 kg

DRUGS (5)
  1. NUVARING [Suspect]
     Indication: CONTRACEPTION
     Dates: start: 20070901, end: 20071101
  2. XOPENEX [Concomitant]
  3. ADVAIR DISKUS 100/50 [Concomitant]
  4. PROVENTIL [Concomitant]
  5. PRENATAL VITAMINS [Concomitant]

REACTIONS (2)
  - PULMONARY EMBOLISM [None]
  - PYREXIA [None]
